FAERS Safety Report 6767930-7 (Version None)
Quarter: 2010Q2

REPORT INFORMATION
  Report Type: 
  Country: None (occurrence: None)
  Receive Date: 20100614
  Receipt Date: 20100604
  Transmission Date: 20101027
  Serious: Yes (Other)
  Sender: FDA-Public Use
  Company Number: GXKR2010BE06241

PATIENT
  Age: 74 Year
  Sex: Female

DRUGS (3)
  1. OXALIPLATIN [Suspect]
     Indication: COLORECTAL CANCER STAGE III
     Dosage: 85 MG/M2 (12 CYCLES)
  2. FLUOROURACIL [Suspect]
     Indication: COLORECTAL CANCER STAGE III
     Dosage: 1000 MG/M2 (12 CYCLES)
  3. FOLINIC ACID (NGX) [Suspect]
     Indication: COLORECTAL CANCER STAGE III
     Dosage: 200 MG/M2 (12 CYCLES)

REACTIONS (5)
  - COUGH [None]
  - DYSPNOEA EXERTIONAL [None]
  - INTERSTITIAL LUNG DISEASE [None]
  - ORGANISING PNEUMONIA [None]
  - RALES [None]
